FAERS Safety Report 6179805-5 (Version None)
Quarter: 2009Q2

REPORT INFORMATION
  Report Type: 
  Country: None (occurrence: None)
  Receive Date: 20090501
  Receipt Date: 20090416
  Transmission Date: 20091009
  Serious: Yes (Hospitalization)
  Sender: FDA-Public Use
  Company Number: ADE# 09-096DPR

PATIENT
  Sex: Male

DRUGS (1)
  1. DIGOXIN [Suspect]

REACTIONS (3)
  - BRADYCARDIA [None]
  - RENAL FAILURE [None]
  - THERAPEUTIC AGENT TOXICITY [None]
